FAERS Safety Report 10726017 (Version 1)
Quarter: 2015Q1

REPORT INFORMATION
  Report Type: Spontaneous
  Country: US (occurrence: None)
  Receive Date: 20150116
  Receipt Date: 20150116
  Transmission Date: 20150721
  Serious: Yes (Hospitalization)
  Sender: FDA-Public Use
  Company Number: 2698748

PATIENT
  Age: 71 Year
  Sex: Male

DRUGS (4)
  1. VINCRISTINE SULFATE. [Suspect]
     Active Substance: VINCRISTINE SULFATE
     Indication: MYCOSIS FUNGOIDES
     Dosage: FIRST COURSE, UNKNOWN, INTRAVENOUS (NOT OTHERWISE SPECIFIED)
     Route: 042
     Dates: start: 20141007
  2. PREDNISONE. [Concomitant]
     Active Substance: PREDNISONE
  3. DOXORUBICINE ACCORD [Suspect]
     Active Substance: DOXORUBICIN
     Indication: MYCOSIS FUNGOIDES
     Dosage: FIRST COURSE, UNKNOWN, INTRAVENOUS (NOT OTHERWISE SPECIFIED)
     Dates: start: 20141007
  4. ENDOXAN /00021101/ [Suspect]
     Active Substance: CYCLOPHOSPHAMIDE
     Indication: MYCOSIS FUNGOIDES
     Dosage: FIRST COURSE, INTRAVENOUS (NOT OTHERWISE SPECIFIED)
     Route: 042
     Dates: start: 20141007

REACTIONS (5)
  - Bronchitis [None]
  - Pyrexia [None]
  - Haematotoxicity [None]
  - Neutropenia [None]
  - Febrile neutropenia [None]

NARRATIVE: CASE EVENT DATE: 20141112
